FAERS Safety Report 5412483-9 (Version None)
Quarter: 2007Q3

REPORT INFORMATION
  Report Type: 
  Country: None (occurrence: None)
  Receive Date: 20070813
  Receipt Date: 20070808
  Transmission Date: 20080115
  Serious: Yes (Disabling)
  Sender: FDA-Public Use
  Company Number: FR-BRISTOL-MYERS SQUIBB COMPANY-13411715

PATIENT
  Age: 43 Year
  Sex: Female

DRUGS (4)
  1. APROVEL TABS [Suspect]
     Indication: ACQUIRED IMMUNODEFICIENCY SYNDROME
     Route: 048
     Dates: start: 20040615, end: 20060315
  2. VIDEX [Suspect]
     Indication: ACQUIRED IMMUNODEFICIENCY SYNDROME
     Route: 048
     Dates: start: 20010915, end: 20060516
  3. EPIVIR [Concomitant]
     Indication: ACQUIRED IMMUNODEFICIENCY SYNDROME
     Dates: start: 20000115
  4. VIRAMUNE [Concomitant]
     Indication: ACQUIRED IMMUNODEFICIENCY SYNDROME
     Dates: start: 20000115

REACTIONS (2)
  - CHOLANGITIS [None]
  - PORTAL HYPERTENSION [None]
